FAERS Safety Report 12856585 (Version 1)
Quarter: 2016Q4

REPORT INFORMATION
  Report Type: Spontaneous
  Country: US (occurrence: US)
  Receive Date: 20161017
  Receipt Date: 20161017
  Transmission Date: 20170207
  Serious: No
  Sender: FDA-Public Use
  Company Number: None

PATIENT
  Age: 66 Year

DRUGS (1)
  1. NINLARO [Suspect]
     Active Substance: IXAZOMIB
     Indication: PLASMA CELL MYELOMA
     Dosage: 4MG EVERY WEEK TIMES 4 BY MOUTH
     Route: 048
     Dates: start: 20160426

REACTIONS (2)
  - Paraesthesia [None]
  - Hypoaesthesia [None]
